FAERS Safety Report 8179160-5 (Version None)
Quarter: 2012Q1

REPORT INFORMATION
  Report Type: 
  Country: None (occurrence: None)
  Receive Date: 20120302
  Receipt Date: 20120227
  Transmission Date: 20120608
  Serious: No
  Sender: FDA-Public Use
  Company Number: US-PFIZER INC-2012009654

PATIENT
  Sex: Female
  Weight: 67.12 kg

DRUGS (8)
  1. MULTI-VITAMINS [Concomitant]
     Dosage: UNK
  2. REMERON [Concomitant]
     Indication: DEPRESSION
     Dosage: 45 MG, DAILY
     Route: 048
  3. LORAZEPAM [Concomitant]
     Indication: DEPRESSION
     Dosage: UNK, DAILY
     Route: 048
  4. PREDNISONE [Concomitant]
     Indication: ARTHRITIS
     Dosage: 9 MG, DAILY
  5. CHANTIX [Suspect]
     Dosage: UNK
     Route: 048
     Dates: start: 20111202
  6. CALCIUM [Concomitant]
     Dosage: UNK
  7. CHANTIX [Suspect]
     Indication: SMOKING CESSATION THERAPY
     Dosage: 0.5 MG, DAILY
     Route: 048
     Dates: start: 20111202, end: 20110101
  8. CELEXA [Concomitant]
     Indication: DEPRESSION
     Dosage: 50 MG, DAILY
     Route: 048

REACTIONS (2)
  - ABNORMAL BEHAVIOUR [None]
  - DECREASED APPETITE [None]
